FAERS Safety Report 9073346 (Version 1)
Quarter: 2013Q1

REPORT INFORMATION
  Report Type: Report from Study
  Country: US (occurrence: US)
  Receive Date: 20130128
  Receipt Date: 20130128
  Transmission Date: 20140127
  Serious: No
  Sender: FDA-Public Use
  Company Number: US-ABBOTT-12P-163-0904152-00

PATIENT
  Age: 59 Year
  Sex: Male

DRUGS (6)
  1. HUMIRA 40 MG/0.8 ML PEN [Suspect]
     Indication: CROHN^S DISEASE
     Dosage: LOADING DOSE
     Dates: start: 20120127
  2. IMURAN [Concomitant]
     Indication: CROHN^S DISEASE
  3. ZYRTEC [Concomitant]
     Indication: SINUS DISORDER
  4. VITAMIN D [Concomitant]
     Indication: VITAMIN D DECREASED
  5. TUMS ULTRA [Concomitant]
     Indication: BONE DISORDER
     Dosage: AT BEDTIME
  6. FLONASE [Concomitant]
     Indication: PRODUCT USED FOR UNKNOWN INDICATION
     Dosage: USES IF HEAD IS STOPPED UP NOT ON DAILY BASIS

REACTIONS (2)
  - Arthralgia [Not Recovered/Not Resolved]
  - Non-cardiac chest pain [Not Recovered/Not Resolved]
